FAERS Safety Report 8014238-8 (Version None)
Quarter: 2011Q4

REPORT INFORMATION
  Report Type: 
  Country: None (occurrence: None)
  Receive Date: 20111229
  Receipt Date: 20111220
  Transmission Date: 20120403
  Serious: Yes (Hospitalization)
  Sender: FDA-Public Use
  Company Number: CO-GLAXOSMITHKLINE-A0959267A

PATIENT
  Age: 52 Year
  Sex: Male
  Weight: 30 kg

DRUGS (1)
  1. VOTRIENT [Suspect]
     Indication: RENAL CELL CARCINOMA
     Dosage: 800MG UNKNOWN
     Route: 048
     Dates: start: 20111219

REACTIONS (11)
  - NEPHRITIC SYNDROME [None]
  - DYSPNOEA [None]
  - RASH [None]
  - RENAL IMPAIRMENT [None]
  - PROTEINURIA [None]
  - HYPERVOLAEMIA [None]
  - OEDEMA [None]
  - BLOOD CREATINE INCREASED [None]
  - HYPERTENSION [None]
  - GENERALISED OEDEMA [None]
  - HYPOTHYROIDISM [None]
